FAERS Safety Report 4324795-0 (Version None)
Quarter: 2004Q1

REPORT INFORMATION
  Report Type: 
  Country: None (occurrence: None)
  Receive Date: 20040326
  Receipt Date: 20031227
  Transmission Date: 20041129
  Serious: Yes (Death, Life-Threatening)
  Sender: FDA-Public Use
  Company Number: JP-GLAXOSMITHKLINE-B0318658A

PATIENT
  Age: 3 Year
  Sex: Male
  Weight: 9 kg

DRUGS (5)
  1. MELPHALAN [Suspect]
     Indication: AUTOLOGOUS BONE MARROW TRANSPLANTATION THERAPY
     Route: 042
     Dates: start: 20020718, end: 20020719
  2. CARBOPLATIN [Suspect]
     Indication: STEM CELL TRANSPLANT
     Dosage: 100MG PER DAY
     Route: 042
     Dates: start: 20020717, end: 20020720
  3. PIRARUBICIN HYDROCHLORIDE [Suspect]
     Route: 042
  4. CYCLOPHOSPHAMIDE [Suspect]
  5. POLYPHARMACY [Concomitant]

REACTIONS (9)
  - BLOOD CREATININE DECREASED [None]
  - BLOOD PRESSURE DECREASED [None]
  - CARDIAC FAILURE [None]
  - FUNGAL INFECTION [None]
  - HAEMODIALYSIS [None]
  - PNEUMONIA [None]
  - PULMONARY OEDEMA [None]
  - RENAL FAILURE ACUTE [None]
  - SEPSIS [None]
